FAERS Safety Report 16372887 (Version 2)
Quarter: 2019Q2

REPORT INFORMATION
  Report Type: Spontaneous
  Country: DE (occurrence: DE)
  Receive Date: 20190530
  Receipt Date: 20190612
  Transmission Date: 20190711
  Serious: Yes (Other)
  Sender: FDA-Public Use
  Company Number: DE-ALLERGAN-1922429US

PATIENT
  Sex: Female
  Weight: 67 kg

DRUGS (1)
  1. NITROGLYCERIN - BP [Suspect]
     Active Substance: NITROGLYCERIN
     Indication: HAEMORRHOIDS
     Dosage: 4 MG
     Route: 065
     Dates: start: 20190508, end: 20190517

REACTIONS (5)
  - Headache [Recovered/Resolved]
  - Dizziness [Recovered/Resolved]
  - Overdose [Unknown]
  - Product use in unapproved indication [Unknown]
  - Paralysis [Recovered/Resolved]

NARRATIVE: CASE EVENT DATE: 20190515
